FAERS Safety Report 19833240 (Version 2)
Quarter: 2021Q3

REPORT INFORMATION
  Report Type: Report from Study
  Country: EG (occurrence: EG)
  Receive Date: 20210915
  Receipt Date: 20210923
  Transmission Date: 20211014
  Serious: Yes (Other)
  Sender: FDA-Public Use
  Company Number: EG-REGENERON PHARMACEUTICALS, INC.-2021-85663

PATIENT

DRUGS (5)
  1. BLINK [CHLOROBUTANOL;MACROGOL;MACROGOL STEARATE] [Concomitant]
     Indication: EYE LUBRICATION THERAPY
     Dates: start: 202105
  2. EYLEA [Suspect]
     Active Substance: AFLIBERCEPT
     Indication: DIABETIC RETINAL OEDEMA
     Dosage: UNK, TOTAL NUMBER OF INJECTIONS: 9 (OD)
     Route: 031
     Dates: start: 201903
  3. COSOPT [Concomitant]
     Active Substance: DORZOLAMIDE HYDROCHLORIDE\TIMOLOL MALEATE
     Indication: INTRAOCULAR PRESSURE TEST ABNORMAL
     Dosage: UNK UNK, BID
     Route: 047
     Dates: start: 202105
  4. BLINK TEARS [Concomitant]
     Active Substance: POLYETHYLENE GLYCOL 400
     Indication: EYE LUBRICATION THERAPY
     Dates: start: 202105
  5. GLUCOPHAGE XR [Concomitant]
     Active Substance: METFORMIN HYDROCHLORIDE
     Indication: DIABETES MELLITUS
     Dosage: 0.5 DF, BID

REACTIONS (8)
  - Eye laser surgery [Unknown]
  - Oedema [Not Recovered/Not Resolved]
  - Cataract operation [Unknown]
  - Headache [Not Recovered/Not Resolved]
  - Eyelid ptosis [Not Recovered/Not Resolved]
  - Intraocular pressure increased [Not Recovered/Not Resolved]
  - Retinal vascular occlusion [Not Recovered/Not Resolved]
  - Inappropriate schedule of product administration [Unknown]

NARRATIVE: CASE EVENT DATE: 2019
